FAERS Safety Report 6209114-7 (Version None)
Quarter: 2009Q2

REPORT INFORMATION
  Report Type: 
  Country: None (occurrence: None)
  Receive Date: 20090522
  Receipt Date: 20090126
  Transmission Date: 20091009
  Serious: No
  Sender: FDA-Public Use
  Company Number: 8041839

PATIENT
  Age: 43 Year
  Sex: Female
  Weight: 83.9 kg

DRUGS (6)
  1. CIMZIA [Suspect]
     Indication: CROHN'S DISEASE
     Dosage: 400 MG SC
     Route: 058
     Dates: start: 20080602
  2. NEXIUM [Concomitant]
  3. SYNTHROID [Concomitant]
  4. VITAMIN D [Concomitant]
  5. XANAX [Concomitant]
  6. DARVOCET [Concomitant]

REACTIONS (5)
  - FISTULA [None]
  - LIP DISORDER [None]
  - OVARIAN CYST [None]
  - POSTMENOPAUSAL HAEMORRHAGE [None]
  - UTERINE POLYP [None]
